FAERS Safety Report 5669094-X (Version None)
Quarter: 2008Q1

REPORT INFORMATION
  Report Type: 
  Country: None (occurrence: None)
  Receive Date: 20080317
  Receipt Date: 20080310
  Transmission Date: 20080703
  Serious: Yes (Hospitalization)
  Sender: FDA-Public Use
  Company Number: US-JNJFOC-20080200129

PATIENT
  Age: 55 Year
  Sex: Female

DRUGS (1)
  1. DURAGESIC-100 [Suspect]
     Indication: PAIN
     Route: 062

REACTIONS (4)
  - CENTRAL NERVOUS SYSTEM LESION [None]
  - CEREBRAL HAEMORRHAGE [None]
  - HAEMANGIOMA [None]
  - MIGRAINE [None]
